FAERS Safety Report 16329351 (Version 1)
Quarter: 2019Q2

REPORT INFORMATION
  Report Type: Spontaneous
  Country: IN (occurrence: IN)
  Receive Date: 20190520
  Receipt Date: 20190520
  Transmission Date: 20190711
  Serious: Yes (Hospitalization, Other)
  Sender: FDA-Public Use
  Company Number: IN-ALEXION-A201907410

PATIENT
  Age: 27 Year
  Sex: Female

DRUGS (5)
  1. ECULIZUMAB [Suspect]
     Active Substance: ECULIZUMAB
     Dosage: 900 MG, QMONTH
     Route: 065
  2. DIGOXIN. [Concomitant]
     Active Substance: DIGOXIN
     Indication: VENTRICULAR DYSFUNCTION
     Route: 065
  3. ECULIZUMAB [Suspect]
     Active Substance: ECULIZUMAB
     Dosage: 900 MG, SINGLE
     Route: 065
  4. HYDRALAZINE [Concomitant]
     Active Substance: HYDRALAZINE HYDROCHLORIDE
     Indication: VENTRICULAR DYSFUNCTION
     Route: 065
  5. ECULIZUMAB [Suspect]
     Active Substance: ECULIZUMAB
     Indication: ATYPICAL HAEMOLYTIC URAEMIC SYNDROME
     Dosage: 900 MG, QW FOR 3 WEEKS
     Route: 065

REACTIONS (14)
  - Pancreatitis acute [Unknown]
  - Condition aggravated [Recovered/Resolved]
  - Fluid overload [Recovered/Resolved]
  - Transplant rejection [Recovered/Resolved]
  - Biliary anastomosis complication [Recovered/Resolved]
  - Malformation biliary [Recovered/Resolved]
  - Hepatic enzyme abnormal [Recovered/Resolved]
  - Escherichia sepsis [Recovered/Resolved]
  - Generalised tonic-clonic seizure [Recovered/Resolved]
  - Thrombotic microangiopathy [Recovered/Resolved]
  - Oliguria [Recovered/Resolved]
  - Liver transplant [Recovered/Resolved]
  - Hepaticojejunostomy [Recovered/Resolved]
  - Biliary sepsis [Recovered/Resolved]
